FAERS Safety Report 9589479 (Version 1)
Quarter: 2013Q4

REPORT INFORMATION
  Report Type: Spontaneous
  Country: US (occurrence: US)
  Receive Date: 20131003
  Receipt Date: 20131003
  Transmission Date: 20140711
  Serious: No
  Sender: FDA-Public Use
  Company Number: US-AMGEN-USASP2012070429

PATIENT
  Age: 84 Year
  Sex: Female

DRUGS (17)
  1. ENBREL [Suspect]
     Indication: PRODUCT USED FOR UNKNOWN INDICATION
     Dosage: 50 MG, WEEKLY
     Route: 058
  2. COUMADIN                           /00014802/ [Concomitant]
     Dosage: 10 MG, UNK
  3. ALENDRONATE [Concomitant]
     Dosage: 5 MG, UNK
  4. LEVOTHYROXIN [Concomitant]
     Dosage: 25 MG, UNK
  5. DILTIAZEM [Concomitant]
     Dosage: 120 MG, UNK
  6. RAMIPRIL [Concomitant]
     Dosage: 1.25 MG, UNK
  7. PREDNISONE [Concomitant]
     Dosage: 1 MG, UNK
  8. SULFASALAZIN [Concomitant]
     Dosage: 500 MG, UNK
  9. METHOTREXATE [Concomitant]
     Dosage: 2.5 MG, UNK
  10. AMITRIPTYLIN [Concomitant]
     Dosage: 1 MG, UNK
  11. ADVAIR HFA [Concomitant]
  12. FOLIC ACID [Concomitant]
     Dosage: 1 MG, UNK
  13. PRESERVISION [Concomitant]
  14. LUTEIN                             /01638501/ [Concomitant]
  15. BIOTIN [Concomitant]
     Dosage: 5 MG, UNK
  16. CALCIUM D                          /00944201/ [Concomitant]
  17. VITAMIN C                          /00008001/ [Concomitant]
     Dosage: 500 MG, UNK

REACTIONS (1)
  - Therapeutic response decreased [Unknown]
